FAERS Safety Report 22313424 (Version 1)
Quarter: 2023Q2

REPORT INFORMATION
  Report Type: Spontaneous
  Country: US (occurrence: US)
  Receive Date: 20230512
  Receipt Date: 20230512
  Transmission Date: 20230721
  Serious: Yes (Life-Threatening, Hospitalization)
  Sender: FDA-Public Use
  Company Number: US-MYLANLABS-2023M1047615

PATIENT
  Age: 57 Year
  Sex: Female

DRUGS (1)
  1. ARIPIPRAZOLE [Suspect]
     Active Substance: ARIPIPRAZOLE
     Indication: Depression
     Dosage: UNK
     Route: 065

REACTIONS (4)
  - Eosinophilic myocarditis [Recovering/Resolving]
  - Ventricular tachycardia [Recovering/Resolving]
  - Atrioventricular block [Recovering/Resolving]
  - Atrioventricular block complete [Recovering/Resolving]
